FAERS Safety Report 10588069 (Version 2)
Quarter: 2015Q1

REPORT INFORMATION
  Report Type: Spontaneous
  Country: US (occurrence: US)
  Receive Date: 20141117
  Receipt Date: 20150113
  Transmission Date: 20150720
  Serious: No
  Sender: FDA-Public Use
  Company Number: US-009507513-1411USA006880

PATIENT
  Age: 70 Year
  Sex: Female
  Weight: 78.5 kg

DRUGS (6)
  1. LATANOPROST. [Concomitant]
     Active Substance: LATANOPROST
     Indication: BORDERLINE GLAUCOMA
     Dosage: UNK, UNKNOWN
  2. LOVASTATIN. [Concomitant]
     Active Substance: LOVASTATIN
     Indication: BLOOD CHOLESTEROL INCREASED
     Dosage: UNK, UNKNOWN
  3. QUINAPRIL HYDROCHLORIDE. [Concomitant]
     Active Substance: QUINAPRIL HYDROCHLORIDE
     Indication: HYPERTENSION
     Dosage: UNK, UNKNOWN
  4. PIOGLITAZONE HYDROCHLORIDE. [Concomitant]
     Active Substance: PIOGLITAZONE HYDROCHLORIDE
     Indication: GLUCOSE TOLERANCE IMPAIRED
     Dosage: UNK, UNKNOWN
  5. OXYTROL FOR WOMEN [Suspect]
     Active Substance: OXYBUTYNIN
     Indication: PRODUCT USED FOR UNKNOWN INDICATION
     Dosage: 1 DF, Q4D
     Route: 062
     Dates: start: 20141008, end: 20141113
  6. EVISTA [Concomitant]
     Active Substance: RALOXIFENE HYDROCHLORIDE
     Indication: POSTMENOPAUSE
     Dosage: UNK, UNKNOWN

REACTIONS (4)
  - Application site irritation [Recovered/Resolved]
  - Application site rash [Recovered/Resolved]
  - Application site erythema [Recovered/Resolved]
  - Application site pruritus [Recovered/Resolved]

NARRATIVE: CASE EVENT DATE: 20141110
